FAERS Safety Report 7770004-X (Version None)
Quarter: 2011Q3

REPORT INFORMATION
  Report Type: 
  Country: None (occurrence: None)
  Receive Date: 20110922
  Receipt Date: 20100105
  Transmission Date: 20111222
  Serious: Yes (Other)
  Sender: FDA-Public Use
  Company Number: US-ASTRAZENECA-2008UW07399

PATIENT
  Age: 12665 Day
  Sex: Male
  Weight: 94.3 kg

DRUGS (13)
  1. PREVACID [Concomitant]
     Dates: start: 20030825
  2. AMBIEN [Concomitant]
     Dates: start: 20030825
  3. ZOCOR [Concomitant]
     Route: 048
     Dates: start: 20061001
  4. NITROGLYCERIN [Concomitant]
     Dosage: P.R.N
     Dates: start: 20070728
  5. SEROQUEL [Suspect]
     Dosage: 1 TAB QD
     Route: 048
     Dates: start: 20030401
  6. ATIVAN [Concomitant]
     Dates: start: 20070728
  7. NORVASC [Concomitant]
     Dates: start: 20030825
  8. TEMAZEPAM [Concomitant]
     Dates: start: 20030825
  9. SEROQUEL [Suspect]
     Dosage: 1-400 MG
     Route: 048
     Dates: start: 20030825
  10. COUMADIN [Concomitant]
     Indication: DEEP VEIN THROMBOSIS
     Dates: start: 20061001
  11. EFFEXOR XR [Concomitant]
     Dates: start: 20030825
  12. LISINOPRIL [Concomitant]
     Dates: start: 20030827
  13. RESTORIL [Concomitant]
     Dates: start: 20061001

REACTIONS (6)
  - TREATMENT NONCOMPLIANCE [None]
  - TYPE 2 DIABETES MELLITUS [None]
  - PANCREATITIS [None]
  - TYPE 1 DIABETES MELLITUS [None]
  - BLOOD GLUCOSE ABNORMAL [None]
  - ERECTILE DYSFUNCTION [None]
